FAERS Safety Report 11141002 (Version 1)
Quarter: 2015Q2

REPORT INFORMATION
  Report Type: Spontaneous
  Country: US (occurrence: None)
  Receive Date: 20150526
  Receipt Date: 20150526
  Transmission Date: 20150821
  Serious: Yes (Disabling)
  Sender: FDA-Public Use
  Company Number: None

PATIENT
  Age: 54 Year
  Sex: Female
  Weight: 68.04 kg

DRUGS (6)
  1. ACTOS [Suspect]
     Active Substance: PIOGLITAZONE HYDROCHLORIDE
  2. JENTADUETO [Concomitant]
     Active Substance: LINAGLIPTIN\METFORMIN HYDROCHLORIDE
  3. ACTOS [Suspect]
     Active Substance: PIOGLITAZONE HYDROCHLORIDE
  4. LANTUS SOLOSTAR INSULIN GLARGINE [Concomitant]
  5. ACTOS [Suspect]
     Active Substance: PIOGLITAZONE HYDROCHLORIDE
     Indication: TYPE 2 DIABETES MELLITUS
     Dosage: 1- PILL ONCE A DAY BY MOUTH  A16178 JUN-2012; A16131 JUL-2012; A15992 AUG-2012; A16414 SEP-2012; A17442 NOV-2012; C16079 NOV-2013; C16165 NOV-2013, C16493 NOV-2013; C16037 NOV-2013
     Route: 048
     Dates: start: 2010, end: 2011
  6. TRIAM/HCTZ [Concomitant]

REACTIONS (1)
  - Vaginal haemorrhage [None]

NARRATIVE: CASE EVENT DATE: 2011
